FAERS Safety Report 19140041 (Version 3)
Quarter: 2021Q4

REPORT INFORMATION
  Report Type: Spontaneous
  Country: DK (occurrence: DK)
  Receive Date: 20210415
  Receipt Date: 20211111
  Transmission Date: 20220303
  Serious: Yes (Other)
  Sender: FDA-Public Use
  Company Number: DK-SUN PHARMACEUTICAL INDUSTRIES LTD-2021R1-291585

PATIENT
  Age: 57 Year
  Sex: Female

DRUGS (12)
  1. CARBOPLATIN [Suspect]
     Active Substance: CARBOPLATIN
     Indication: Small cell carcinoma
     Dosage: UNK
     Route: 065
  2. CARBOPLATIN [Suspect]
     Active Substance: CARBOPLATIN
     Indication: Chemotherapy
  3. PEMETREXED [Suspect]
     Active Substance: PEMETREXED
     Indication: Chemotherapy
     Dosage: UNK
     Route: 065
  4. PEMETREXED [Suspect]
     Active Substance: PEMETREXED
     Indication: Non-small cell lung cancer metastatic
  5. ERLOTINIB [Suspect]
     Active Substance: ERLOTINIB
     Indication: Metastases to central nervous system
     Dosage: UNK
     Route: 065
  6. ERLOTINIB [Suspect]
     Active Substance: ERLOTINIB
     Indication: Metastases to bone
  7. ERLOTINIB [Suspect]
     Active Substance: ERLOTINIB
     Indication: Non-small cell lung cancer
  8. GEFITINIB [Suspect]
     Active Substance: GEFITINIB
     Indication: Pulmonary embolism
     Dosage: UNK
     Route: 048
  9. OSIMERTINIB [Suspect]
     Active Substance: OSIMERTINIB
     Indication: Gene mutation
     Dosage: UNK
     Route: 048
  10. OSIMERTINIB [Suspect]
     Active Substance: OSIMERTINIB
     Indication: Non-small cell lung cancer
  11. ETOPOSIDE [Suspect]
     Active Substance: ETOPOSIDE
     Indication: Small cell carcinoma
     Dosage: UNK
     Route: 065
  12. ETOPOSIDE [Suspect]
     Active Substance: ETOPOSIDE
     Indication: Chemotherapy

REACTIONS (8)
  - Disease progression [Unknown]
  - Malignant neoplasm progression [Unknown]
  - EGFR gene mutation [Not Recovered/Not Resolved]
  - Pulmonary embolism [Unknown]
  - Acquired gene mutation [Unknown]
  - Drug resistance [Unknown]
  - Malignant transformation [Unknown]
  - Small cell carcinoma [Unknown]
